FAERS Safety Report 6231546-1 (Version None)
Quarter: 2009Q2

REPORT INFORMATION
  Report Type: 
  Country: None (occurrence: None)
  Receive Date: 20090611
  Receipt Date: 20090529
  Transmission Date: 20091009
  Serious: Yes (Other)
  Sender: FDA-Public Use
  Company Number: 1000006361

PATIENT
  Age: 23 Year
  Sex: Male
  Weight: 70 kg

DRUGS (5)
  1. CITALOPRAM HYDROBROMIDE [Suspect]
     Indication: DEPRESSION
     Dosage: 40-60 MG, ORAL; 20-40 MG (1 IN 1 D), ORAL
     Route: 048
     Dates: start: 20081113, end: 20081113
  2. TRAMADOL HCL [Suspect]
     Indication: BACK PAIN
     Dosage: 200 MG, ORAL; 100 MG (100 MG, 1 IN 1 D), ORAL
     Route: 048
     Dates: start: 20081113, end: 20081113
  3. LORAZEPAM [Suspect]
     Indication: NERVOUSNESS
     Dosage: 1 MG; 1-2 MG (1 IN 1 D)
     Dates: start: 20081113, end: 20081113
  4. LORAZEPAM [Suspect]
     Indication: RESTLESSNESS
     Dosage: 1 MG; 1-2 MG (1 IN 1 D)
     Dates: start: 20081113, end: 20081113
  5. ALCOHOL [Suspect]
     Dosage: 0.7 LITER RED WINE, ORAL
     Route: 048
     Dates: start: 20081113, end: 20081113

REACTIONS (6)
  - ALTERED STATE OF CONSCIOUSNESS [None]
  - AMNESIA [None]
  - DEPERSONALISATION [None]
  - DEREALISATION [None]
  - DRUG INTERACTION [None]
  - LEGAL PROBLEM [None]
